FAERS Safety Report 8351021-8 (Version None)
Quarter: 2012Q2

REPORT INFORMATION
  Report Type: 
  Country: None (occurrence: None)
  Receive Date: 20120510
  Receipt Date: 20120507
  Transmission Date: 20120825
  Serious: Yes (Other)
  Sender: FDA-Public Use
  Company Number: US-TEVA-332868USA

PATIENT
  Sex: Male

DRUGS (1)
  1. CLARAVIS [Suspect]
     Route: 048
     Dates: start: 20120201, end: 20120401

REACTIONS (3)
  - DEPRESSION [None]
  - MOOD ALTERED [None]
  - SELF INJURIOUS BEHAVIOUR [None]
